FAERS Safety Report 9054989 (Version 1)
Quarter: 2013Q1

REPORT INFORMATION
  Report Type: Report from Study
  Country: US (occurrence: US)
  Receive Date: 20130208
  Receipt Date: 20130208
  Transmission Date: 20140127
  Serious: Yes (Hospitalization)
  Sender: FDA-Public Use
  Company Number: US-BRISTOL-MYERS SQUIBB COMPANY-17331422

PATIENT
  Age: 55 Year
  Sex: Male
  Weight: 97.5 kg

DRUGS (17)
  1. ERBITUX [Suspect]
     Indication: HEAD AND NECK CANCER
     Route: 042
     Dates: start: 20121009, end: 20130122
  2. CISPLATIN [Suspect]
     Route: 042
     Dates: start: 20121218, end: 20130122
  3. ROXICET [Concomitant]
  4. SLO-MAG [Concomitant]
  5. CELEXA [Concomitant]
  6. VITAMIN B12 [Concomitant]
  7. FLONASE [Concomitant]
  8. FOLIC ACID [Concomitant]
  9. PREVACID [Concomitant]
  10. MAGNESIUM OXIDE [Concomitant]
  11. LOPRESSOR [Concomitant]
  12. MVI [Concomitant]
  13. NICOTINE [Concomitant]
  14. SEROQUEL [Concomitant]
  15. ZOCOR [Concomitant]
  16. ALBUTEROL [Concomitant]
  17. ADVAIR [Concomitant]

REACTIONS (1)
  - Mucosal inflammation [Unknown]
